FAERS Safety Report 13501573 (Version 2)
Quarter: 2018Q1

REPORT INFORMATION
  Report Type: Report from Study
  Country: US (occurrence: US)
  Receive Date: 20170501
  Receipt Date: 20180112
  Transmission Date: 20180508
  Serious: Yes (Other)
  Sender: FDA-Public Use
  Company Number: US-GILEAD-2016-0203035

PATIENT
  Age: 60 Year
  Sex: Female

DRUGS (3)
  1. PRILOSEC [Concomitant]
     Active Substance: OMEPRAZOLE MAGNESIUM
     Dosage: 40 MG, UNK
  2. LEDIPASVIR/SOFOSBUVIR [Suspect]
     Active Substance: LEDIPASVIR\SOFOSBUVIR
     Indication: CHRONIC HEPATITIS C
     Dosage: 1 DF, QD
     Route: 048
     Dates: start: 20160201, end: 20160501
  3. LEDIPASVIR/SOFOSBUVIR [Interacting]
     Active Substance: LEDIPASVIR\SOFOSBUVIR
     Dosage: 1 DF, QD
     Route: 048
     Dates: start: 20160228

REACTIONS (19)
  - Exercise tolerance decreased [Unknown]
  - Myalgia [Unknown]
  - Muscle spasms [Unknown]
  - Ligament rupture [Unknown]
  - Muscular weakness [Unknown]
  - Headache [Unknown]
  - Dyspnoea [Unknown]
  - Cataract [Not Recovered/Not Resolved]
  - Erythema [Unknown]
  - Pain of skin [Unknown]
  - Stress fracture [Unknown]
  - Fatigue [Unknown]
  - Autoimmune disorder [Unknown]
  - Asthenia [Unknown]
  - Chest pain [Unknown]
  - Weight increased [Unknown]
  - Bone disorder [Unknown]
  - Drug interaction [Unknown]
  - Skin swelling [Unknown]
